FAERS Safety Report 4609606-8 (Version None)
Quarter: 2005Q1

REPORT INFORMATION
  Report Type: 
  Country: None (occurrence: None)
  Receive Date: 20050314
  Receipt Date: 20050228
  Transmission Date: 20050727
  Serious: Yes (Life-Threatening, Hospitalization)
  Sender: FDA-Public Use
  Company Number: GB-2005-002791

PATIENT
  Age: 48 Year
  Sex: Male
  Weight: 100 kg

DRUGS (1)
  1. ULTRAVIST 150 [Suspect]
     Indication: UROGRAPHY
     Dosage: 50ML, INTRAVENOUS
     Route: 042
     Dates: start: 20050221, end: 20050221

REACTIONS (1)
  - RESPIRATORY ARREST [None]
